FAERS Safety Report 9606178 (Version 1)
Quarter: 2013Q4

REPORT INFORMATION
  Report Type: Spontaneous
  Country: US (occurrence: US)
  Receive Date: 20131008
  Receipt Date: 20131008
  Transmission Date: 20140711
  Serious: No
  Sender: FDA-Public Use
  Company Number: US-AMGEN-USASP2013043982

PATIENT
  Age: 72 Year
  Sex: Female

DRUGS (9)
  1. PROLIA [Suspect]
     Indication: OSTEOPOROSIS POSTMENOPAUSAL
     Dosage: UNK
     Dates: start: 201306
  2. LISINOPRIL [Concomitant]
     Dosage: UNK
  3. SIMVASTATIN [Concomitant]
     Dosage: UNK
  4. ASPIRIN [Concomitant]
  5. VITAMIN D                          /00107901/ [Concomitant]
     Dosage: UNK
  6. LORTAB                             /00607101/ [Concomitant]
     Dosage: UNK
  7. METHOCARBAMOL [Concomitant]
     Dosage: UNK
  8. FLUOXETINE [Concomitant]
     Dosage: UNK
  9. XANAX [Concomitant]
     Dosage: UNK

REACTIONS (3)
  - Back pain [Recovered/Resolved]
  - Arthralgia [Recovering/Resolving]
  - Pain in extremity [Recovering/Resolving]
